FAERS Safety Report 9594249 (Version 1)
Quarter: 2013Q3

REPORT INFORMATION
  Report Type: Spontaneous
  Country: US (occurrence: None)
  Receive Date: 20130930
  Receipt Date: 20130930
  Transmission Date: 20140515
  Serious: Yes (Other)
  Sender: FDA-Public Use
  Company Number: 1000048314

PATIENT
  Age: 74 Year
  Sex: Male

DRUGS (1)
  1. LINZESS [Suspect]
     Dosage: 290MCG (290 MCG, 1 IN 1 D)

REACTIONS (2)
  - Diarrhoea [None]
  - Cough [None]
